FAERS Safety Report 9170718 (Version 1)
Quarter: 2013Q1

REPORT INFORMATION
  Report Type: Spontaneous
  Country: US (occurrence: None)
  Receive Date: 20130312
  Receipt Date: 20130312
  Transmission Date: 20140127
  Serious: Yes (Disabling, Other)
  Sender: FDA-Public Use
  Company Number: 1303-303

PATIENT
  Sex: 0

DRUGS (1)
  1. ARCALYST [Suspect]
     Dosage: 160MG, 1 IN 1 WEEK, SUBCUTANEOUS
     Route: 058
     Dates: start: 200810

REACTIONS (2)
  - Limb operation [None]
  - Post procedural complication [None]
